FAERS Safety Report 4594649-3 (Version None)
Quarter: 2005Q1

REPORT INFORMATION
  Report Type: 
  Country: None (occurrence: None)
  Receive Date: 20050301
  Receipt Date: 20041119
  Transmission Date: 20050727
  Serious: Yes (Other)
  Sender: FDA-Public Use
  Company Number: US-BRISTOL-MYERS SQUIBB COMPANY-12771028

PATIENT
  Age: 47 Year
  Sex: Male
  Weight: 102 kg

DRUGS (5)
  1. ERBITUX [Suspect]
     Indication: RECTAL CANCER METASTATIC
     Route: 042
  2. DEXAMETHASONE [Concomitant]
     Indication: PREMEDICATION
     Route: 042
  3. DIPHENHYDRAMINE HCL [Concomitant]
     Indication: PREMEDICATION
     Route: 042
  4. ZOFRAN [Concomitant]
     Indication: PREMEDICATION
     Route: 042
  5. IRINOTECAN HCL [Concomitant]

REACTIONS (5)
  - DERMATITIS ACNEIFORM [None]
  - ERYTHEMA [None]
  - FOOD ALLERGY [None]
  - PRURITUS [None]
  - RASH PUSTULAR [None]
